FAERS Safety Report 6781419-0 (Version None)
Quarter: 2010Q2

REPORT INFORMATION
  Report Type: 
  Country: None (occurrence: None)
  Receive Date: 20100617
  Receipt Date: 20100617
  Transmission Date: 20101027
  Serious: Yes (Other)
  Sender: FDA-Public Use
  Company Number: None

PATIENT
  Age: 56 Year
  Sex: Female
  Weight: 78.9259 kg

DRUGS (3)
  1. NUCYNTA [Suspect]
     Indication: ARTHRITIS
     Dosage: 1 TABLET DAILY X 7 DAYS P.O. 2 TABLETS DAILY X 3 DAYS P.O.
     Route: 048
     Dates: start: 20100521, end: 20100531
  2. NUCYNTA [Suspect]
     Indication: ARTHROPATHY
     Dosage: 1 TABLET DAILY X 7 DAYS P.O. 2 TABLETS DAILY X 3 DAYS P.O.
     Route: 048
     Dates: start: 20100521, end: 20100531
  3. NUCYNTA [Suspect]
     Indication: BACK DISORDER
     Dosage: 1 TABLET DAILY X 7 DAYS P.O. 2 TABLETS DAILY X 3 DAYS P.O.
     Route: 048
     Dates: start: 20100521, end: 20100531

REACTIONS (9)
  - DISTURBANCE IN ATTENTION [None]
  - DIZZINESS [None]
  - HEADACHE [None]
  - MALAISE [None]
  - MEMORY IMPAIRMENT [None]
  - NAUSEA [None]
  - PYREXIA [None]
  - SOMNOLENCE [None]
  - TREMOR [None]
